FAERS Safety Report 8015425 (Version 3)
Quarter: 2013Q3

REPORT INFORMATION
  Report Type: Report from Study
  Country: US (occurrence: US)
  Receive Date: 20110629
  Receipt Date: 20130823
  Transmission Date: 20140515
  Serious: Yes (Other)
  Sender: FDA-Public Use
  Company Number: US-UCBSA-008803

PATIENT
  Age: 20 Year
  Sex: Female

DRUGS (4)
  1. KEPPRA XR [Suspect]
     Indication: EPILEPSY
     Dates: start: 20091201
  2. KEPPRA XR [Suspect]
     Indication: EPILEPSY
     Dates: end: 20091130
  3. LEVETIRACETAM [Suspect]
     Indication: EPILEPSY
     Dates: start: 200911
  4. PRENATAL VITAMIN [Concomitant]
     Indication: PREGNANCY
     Dosage: DF IS TABLET
     Route: 048
     Dates: start: 200908

REACTIONS (11)
  - Convulsion [Unknown]
  - Vaginal haemorrhage [Recovered/Resolved]
  - Muscle twitching [Unknown]
  - Upper respiratory tract infection [Recovered/Resolved]
  - Headache [Recovered/Resolved]
  - Abdominal pain [Recovered/Resolved]
  - Insomnia [Recovered/Resolved]
  - Constipation [Unknown]
  - Nausea [Recovered/Resolved]
  - Inappropriate schedule of drug administration [Unknown]
  - Pregnancy [Unknown]
